FAERS Safety Report 10150885 (Version 1)
Quarter: 2014Q2

REPORT INFORMATION
  Report Type: Spontaneous
  Country: US (occurrence: US)
  Receive Date: 20140502
  Receipt Date: 20140502
  Transmission Date: 20141212
  Serious: Yes (Other)
  Sender: FDA-Public Use
  Company Number: US-TEVA-479353USA

PATIENT
  Age: 24 Year
  Sex: Female
  Weight: 58.11 kg

DRUGS (4)
  1. PARAGARD 380A [Suspect]
     Indication: CONTRACEPTION
     Route: 015
     Dates: start: 20140319, end: 20140429
  2. PARAGARD 380A [Suspect]
     Route: 015
     Dates: start: 20140429
  3. VIIBRYD [Concomitant]
     Indication: PANIC ATTACK
  4. FLONASE [Concomitant]
     Indication: MULTIPLE ALLERGIES

REACTIONS (5)
  - Device dislocation [Recovered/Resolved]
  - Vulvovaginal pruritus [Recovered/Resolved]
  - Pelvic pain [Recovered/Resolved]
  - Vaginal discharge [Recovered/Resolved]
  - Vaginal odour [Recovered/Resolved]
